FAERS Safety Report 8056331-X (Version None)
Quarter: 2012Q1

REPORT INFORMATION
  Report Type: 
  Country: None (occurrence: None)
  Receive Date: 20120119
  Receipt Date: 20120109
  Transmission Date: 20120608
  Serious: Yes (Hospitalization, Other)
  Sender: FDA-Public Use
  Company Number: US-ELI_LILLY_AND_COMPANY-US201201003108

PATIENT
  Sex: Female

DRUGS (13)
  1. VITAMIN D [Concomitant]
     Dosage: 2000 IU, UNK
  2. FISH OIL [Concomitant]
  3. EVISTA [Suspect]
     Dosage: 60 MG, 2/W
     Dates: start: 20110909
  4. ZINC [Concomitant]
  5. TYLENOL                                 /SCH/ [Concomitant]
  6. XGEVA [Concomitant]
  7. CARTIA XT [Concomitant]
  8. FORTEO [Suspect]
     Indication: OSTEOPOROSIS
     Dosage: 20 UG, QD
     Dates: start: 20070401, end: 20090401
  9. ASPIRIN [Concomitant]
     Dosage: 81 MG, QOD
  10. CALCIUM [Concomitant]
  11. MAGNESIUM [Concomitant]
  12. EVISTA [Suspect]
     Dosage: 60 MG, 2/W
     Dates: start: 20111201
  13. FORTEO [Suspect]
     Dosage: 20 UG, QD
     Dates: start: 20111101

REACTIONS (10)
  - DRUG PRESCRIBING ERROR [None]
  - HIP FRACTURE [None]
  - PNEUMONIA [None]
  - IRRITABLE BOWEL SYNDROME [None]
  - CARDIAC FAILURE CONGESTIVE [None]
  - HEART RATE INCREASED [None]
  - DRUG HYPERSENSITIVITY [None]
  - FALL [None]
  - LUNG DISORDER [None]
  - INTENTIONAL DRUG MISUSE [None]
